FAERS Safety Report 4324620-8 (Version None)
Quarter: 2004Q1

REPORT INFORMATION
  Report Type: 
  Country: None (occurrence: None)
  Receive Date: 20040322
  Receipt Date: 20040224
  Transmission Date: 20041129
  Serious: Yes (Hospitalization)
  Sender: FDA-Public Use
  Company Number: AU-JNJFOC-20040302002

PATIENT
  Sex: Female

DRUGS (6)
  1. TRAMAL SR (TRAMADOL HYDROCHLORIDE) TABLETS [Suspect]
     Indication: BACK PAIN
     Dosage: 400 MG, IN 1 DAY, ORAL
     Route: 048
     Dates: end: 20021231
  2. FLUOXETINE [Concomitant]
  3. CELEBREX [Concomitant]
  4. DIAZEPAM [Concomitant]
  5. ACETAMINOPHEN [Concomitant]
  6. MS CONTIN [Concomitant]

REACTIONS (2)
  - BACK PAIN [None]
  - SEROTONIN SYNDROME [None]
